FAERS Safety Report 19939380 (Version 1)
Quarter: 2021Q4

REPORT INFORMATION
  Report Type: Spontaneous
  Country: US (occurrence: US)
  Receive Date: 20211011
  Receipt Date: 20211011
  Transmission Date: 20220303
  Serious: No
  Sender: FDA-Public Use
  Company Number: US-AMGEN-USASP2021156177

PATIENT
  Age: 74 Year
  Sex: Female

DRUGS (8)
  1. OTEZLA [Suspect]
     Active Substance: APREMILAST
     Indication: Psoriasis
     Dosage: 30 MILLIGRAM, BID
     Route: 048
     Dates: start: 20190408
  2. BRILINTA [Concomitant]
     Active Substance: TICAGRELOR
     Dosage: UNK
  3. COREG [Concomitant]
     Active Substance: CARVEDILOL
     Dosage: UNK
  4. LASIX [Concomitant]
     Active Substance: FUROSEMIDE
     Dosage: UNK
  5. LISINOPRIL [Concomitant]
     Active Substance: LISINOPRIL
     Dosage: UNK
  6. METFORMIN [Concomitant]
     Active Substance: METFORMIN HYDROCHLORIDE
     Dosage: UNK
  7. POTASSIUM CHLORIDE [Concomitant]
     Active Substance: POTASSIUM CHLORIDE
     Dosage: UNK
  8. SYNTHROID [Concomitant]
     Active Substance: LEVOTHYROXINE SODIUM
     Dosage: UNK

REACTIONS (1)
  - Psoriasis [Not Recovered/Not Resolved]

NARRATIVE: CASE EVENT DATE: 20210901
